FAERS Safety Report 16411623 (Version 1)
Quarter: 2019Q2

REPORT INFORMATION
  Report Type: Spontaneous
  Country: FR (occurrence: FR)
  Receive Date: 20190610
  Receipt Date: 20190610
  Transmission Date: 20190711
  Serious: Yes (Other)
  Sender: FDA-Public Use
  Company Number: FR-JNJFOC-20190602418

PATIENT
  Age: 34 Year
  Sex: Female

DRUGS (3)
  1. ELETRIPTAN. [Concomitant]
     Active Substance: ELETRIPTAN
     Route: 048
  2. EPITOMAX [Suspect]
     Active Substance: TOPIRAMATE
     Indication: MIGRAINE
     Route: 048
     Dates: start: 20190419, end: 20190516
  3. PROFENID [Concomitant]
     Active Substance: KETOPROFEN
     Route: 048

REACTIONS (5)
  - Migraine [Not Recovered/Not Resolved]
  - Alopecia [Not Recovered/Not Resolved]
  - Epistaxis [Not Recovered/Not Resolved]
  - Product supply issue [Recovered/Resolved]
  - Product substitution issue [Recovered/Resolved]

NARRATIVE: CASE EVENT DATE: 20190419
